FAERS Safety Report 9419916 (Version 3)
Quarter: 2013Q4

REPORT INFORMATION
  Report Type: Spontaneous
  Country: US (occurrence: US)
  Receive Date: 20130725
  Receipt Date: 20131009
  Transmission Date: 20140711
  Serious: Yes (Hospitalization, Other)
  Sender: FDA-Public Use
  Company Number: US-GILEAD-2013-0079861

PATIENT
  Sex: Female

DRUGS (2)
  1. LETAIRIS [Suspect]
     Indication: PULMONARY HYPERTENSION
     Dosage: 10 MG, QD
     Dates: start: 20070806
  2. LETAIRIS [Suspect]
     Indication: SCLERODERMA

REACTIONS (5)
  - Gastric operation [Unknown]
  - Renal failure [Unknown]
  - Colostomy [Unknown]
  - Lung infection [Unknown]
  - Pneumonia [Unknown]
